FAERS Safety Report 12884426 (Version 3)
Quarter: 2016Q4

REPORT INFORMATION
  Report Type: Report from Study
  Country: US (occurrence: US)
  Receive Date: 20161026
  Receipt Date: 20161207
  Transmission Date: 20170207
  Serious: Yes (Other)
  Sender: FDA-Public Use
  Company Number: US-ROCHE-1823052

PATIENT
  Age: 58 Year
  Sex: Female
  Weight: 100.2 kg

DRUGS (20)
  1. VEMURAFENIB [Suspect]
     Active Substance: VEMURAFENIB
     Indication: METASTATIC MALIGNANT MELANOMA
     Dosage: (COHORT 4 INCLUDES A 28 DAY RUN-IN WITH VEMURAFENIB 960 MG FOR 21 DAYS THEN VEMURAFENIB 720 MG FOR 7
     Route: 048
     Dates: start: 20160701
  2. POTASSIUM CHLORIDE. [Concomitant]
     Active Substance: POTASSIUM CHLORIDE
     Indication: LYMPHOEDEMA
     Dosage: 20 OTHER
     Route: 048
     Dates: start: 20160617
  3. COBIMETINIB [Suspect]
     Active Substance: COBIMETINIB
     Indication: METASTATIC MALIGNANT MELANOMA
     Dosage: RUN IN COBIMETIINB: ?MOST RECENT DOSE 60 MG, ON 21/JUL/2016
     Route: 048
     Dates: start: 20160702
  4. FUROSEMIDE. [Concomitant]
     Active Substance: FUROSEMIDE
     Route: 048
     Dates: start: 20160816
  5. CLINDAMYCIN. [Concomitant]
     Active Substance: CLINDAMYCIN
     Indication: DERMATITIS ACNEIFORM
     Dosage: 1 OTHER
     Route: 061
     Dates: start: 20160722
  6. ONDANSETRON [Concomitant]
     Active Substance: ONDANSETRON
     Indication: NAUSEA
     Route: 048
     Dates: start: 20160816
  7. METFORMIN [Concomitant]
     Active Substance: METFORMIN HYDROCHLORIDE
     Route: 048
     Dates: start: 20160816
  8. OXYCODONE [Concomitant]
     Active Substance: OXYCODONE
     Indication: PAIN
     Route: 048
     Dates: start: 20160906
  9. NORMAL SALINE [Concomitant]
     Active Substance: SODIUM CHLORIDE
     Indication: HYPONATRAEMIA
     Route: 040
     Dates: start: 20160816, end: 20160816
  10. VEMURAFENIB [Suspect]
     Active Substance: VEMURAFENIB
     Indication: METASTATIC MALIGNANT MELANOMA
     Dosage: COMBO VEMURAFENIB?MOST RECENT DOSE 720 MG ON 29/AUG/2016
     Route: 048
     Dates: start: 20160802
  11. VEMURAFENIB [Suspect]
     Active Substance: VEMURAFENIB
     Dosage: RUN-IN PERIOD EXTENDED. PRIOR TO CYCLE 1 DAY 1
     Route: 048
     Dates: start: 20160726, end: 20160801
  12. ACETAMINOPHEN. [Concomitant]
     Active Substance: ACETAMINOPHEN
     Indication: ARTHRALGIA
     Route: 048
     Dates: start: 20160531
  13. CALCIUM CARBONATE. [Concomitant]
     Active Substance: CALCIUM CARBONATE
     Indication: GASTROOESOPHAGEAL REFLUX DISEASE
     Route: 048
     Dates: start: 2003
  14. FUROSEMIDE. [Concomitant]
     Active Substance: FUROSEMIDE
     Indication: LYMPHOEDEMA
     Route: 048
     Dates: start: 20160708, end: 20160816
  15. ATEZOLIZUMAB [Suspect]
     Active Substance: ATEZOLIZUMAB
     Indication: METASTATIC MALIGNANT MELANOMA
     Dosage: THE MOST RECENT DOSE OF ATEZOLIZUMAB 800 MG, WAS ADMINISTERED ON 16/AUG/2016.
     Route: 042
     Dates: start: 20160802
  16. LOPERAMIDE [Concomitant]
     Active Substance: LOPERAMIDE
     Indication: DIARRHOEA
     Route: 048
     Dates: start: 20160708
  17. IBUPROFEN. [Concomitant]
     Active Substance: IBUPROFEN
     Indication: PAIN IN EXTREMITY
     Route: 048
  18. LISINOPRIL. [Concomitant]
     Active Substance: LISINOPRIL
     Indication: HYPERTENSION
     Route: 048
     Dates: start: 20160816
  19. COBIMETINIB [Suspect]
     Active Substance: COBIMETINIB
     Indication: METASTATIC MALIGNANT MELANOMA
     Dosage: THE MOST RECENT DOSE OF COMBO COBIMETINIB, 60 MG, WAS ADMINISTERED ON 22/AUG/2016.
     Route: 048
     Dates: start: 20160802
  20. METRONIDAZOLE. [Concomitant]
     Active Substance: METRONIDAZOLE
     Indication: ULCER
     Dosage: 1 OTHER
     Route: 061
     Dates: start: 20160601

REACTIONS (2)
  - Electrocardiogram T wave inversion [Not Recovered/Not Resolved]
  - Electrocardiogram QT prolonged [Recovered/Resolved]

NARRATIVE: CASE EVENT DATE: 20160830
